FAERS Safety Report 4658411-5 (Version None)
Quarter: 2005Q2

REPORT INFORMATION
  Report Type: 
  Country: None (occurrence: None)
  Receive Date: 20050509
  Receipt Date: 20050425
  Transmission Date: 20051028
  Serious: Yes (Hospitalization)
  Sender: FDA-Public Use
  Company Number: HQWYE496403MAY05

PATIENT
  Age: 76 Year
  Sex: Female
  Weight: 65.4 kg

DRUGS (19)
  1. RAPAMUNE [Suspect]
     Indication: PROPHYLAXIS AGAINST TRANSPLANT REJECTION
     Dosage: 3 MG 1X PER 1 DAY
     Route: 048
     Dates: start: 20050304
  2. RAPAMUNE [Suspect]
     Route: 048
  3. CELLCEPT [Suspect]
     Dosage: 500 MG 4X PER 1 DAY, ORAL
     Route: 048
  4. PREDNISONE [Suspect]
     Dosage: 9 MG 1X PER 1 DAY, ORAL
     Route: 048
  5. VALCYTE [Concomitant]
  6. PROTONIX [Concomitant]
  7. MYCELEX [Concomitant]
  8. MULTIVITAMINS, PLAIN (MULTIVITAMINS, PLAIN) [Concomitant]
  9. BACTRIM [Concomitant]
  10. LASIX [Concomitant]
  11. IMDUR [Concomitant]
  12. HYDRALAZINE HCL [Concomitant]
  13. TOPROL-XL [Concomitant]
  14. PROCARDIA XL [Concomitant]
  15. ASPIRIN [Concomitant]
  16. ZOLOFT [Concomitant]
  17. K-PHOS (POTASSIUM PHOSPHATE MONOBASIC) [Concomitant]
  18. KLONOPIN [Concomitant]
  19. LOTREL [Concomitant]

REACTIONS (2)
  - CARDIAC FAILURE CONGESTIVE [None]
  - FLUID OVERLOAD [None]
